FAERS Safety Report 5391637-4 (Version None)
Quarter: 2007Q3

REPORT INFORMATION
  Report Type: 
  Country: None (occurrence: None)
  Receive Date: 20070719
  Receipt Date: 20070716
  Transmission Date: 20080115
  Serious: Yes (Other)
  Sender: FDA-Public Use
  Company Number: NL-BOEHRINGER INGELHEIM PHARMACEUTICALS, INC.-2007-DE-04157GD

PATIENT

DRUGS (2)
  1. ASPIRIN AND DIPYRIDAMOLE [Suspect]
     Indication: ANTIPLATELET THERAPY
     Dosage: 400 MG DIPYRIDAMOLE/50 MG ACETYLSALICYLIC ACID
     Route: 048
  2. HEPARIN [Suspect]

REACTIONS (1)
  - CEREBROVASCULAR ACCIDENT [None]
